FAERS Safety Report 20032605 (Version 1)
Quarter: 2021Q4

REPORT INFORMATION
  Report Type: Report from Study
  Country: US (occurrence: US)
  Receive Date: 20211103
  Receipt Date: 20211103
  Transmission Date: 20220304
  Serious: Yes (Death)
  Sender: FDA-Public Use
  Company Number: US-ABBVIE-20K-163-3665031-00

PATIENT
  Sex: Male
  Weight: 90.800 kg

DRUGS (4)
  1. VENCLEXTA [Suspect]
     Active Substance: VENETOCLAX
     Indication: Malignant mediastinal neoplasm
     Dosage: DAY 1
     Route: 048
     Dates: start: 20201109, end: 20201109
  2. VENCLEXTA [Suspect]
     Active Substance: VENETOCLAX
     Indication: Diffuse large B-cell lymphoma
     Dosage: DAY 2
     Route: 048
     Dates: start: 20201110, end: 20201110
  3. VENCLEXTA [Suspect]
     Active Substance: VENETOCLAX
     Dosage: DAY 3
     Route: 048
     Dates: start: 20201111, end: 20201111
  4. VENCLEXTA [Suspect]
     Active Substance: VENETOCLAX
     Dosage: DAY 4
     Route: 048
     Dates: start: 20201112

REACTIONS (2)
  - Death [Fatal]
  - Off label use [Unknown]
